FAERS Safety Report 6223706-0 (Version None)
Quarter: 2009Q2

REPORT INFORMATION
  Report Type: 
  Country: None (occurrence: None)
  Receive Date: 20090611
  Receipt Date: 20090311
  Transmission Date: 20091009
  Serious: No
  Sender: FDA-Public Use
  Company Number: US-ABBOTT-08P-163-0495249-00

PATIENT
  Sex: Female
  Weight: 69.008 kg

DRUGS (2)
  1. HUMIRA [Suspect]
     Indication: PSORIASIS
     Dates: start: 20081126
  2. HUMIRA [Suspect]
     Dates: end: 20090220

REACTIONS (6)
  - FATIGUE [None]
  - HEADACHE [None]
  - NAUSEA [None]
  - PRURITUS [None]
  - PYREXIA [None]
  - RASH [None]
